FAERS Safety Report 11645514 (Version 1)
Quarter: 2015Q4

REPORT INFORMATION
  Report Type: Spontaneous
  Country: US (occurrence: US)
  Receive Date: 20151020
  Receipt Date: 20151020
  Transmission Date: 20160304
  Serious: No
  Sender: FDA-Public Use
  Company Number: US-BAYER-2015-446355

PATIENT
  Age: 82 Year
  Sex: Female
  Weight: 56.24 kg

DRUGS (20)
  1. ALEVE [Suspect]
     Active Substance: NAPROXEN SODIUM
     Indication: ANALGESIC THERAPY
  2. VITAMIN D [Concomitant]
     Active Substance: CHOLECALCIFEROL
  3. TRAMADOL. [Concomitant]
     Active Substance: TRAMADOL
  4. ACTINOMYCIN D [Concomitant]
     Active Substance: DACTINOMYCIN
  5. PANTOPRAZOLE [Concomitant]
     Active Substance: PANTOPRAZOLE SODIUM
  6. REFRESH TEARS [Concomitant]
     Active Substance: CARBOXYMETHYLCELLULOSE SODIUM
  7. ALEVE [Suspect]
     Active Substance: NAPROXEN SODIUM
     Indication: ANALGESIC THERAPY
  8. TROPINAL [Concomitant]
  9. PREDNISONE. [Concomitant]
     Active Substance: PREDNISONE
  10. CYCLOBENZAPRINE [Concomitant]
     Active Substance: CYCLOBENZAPRINE
  11. ASACOL [Concomitant]
     Active Substance: MESALAMINE
  12. AMLODIPINE [Concomitant]
     Active Substance: AMLODIPINE BESYLATE
  13. MAXITROL [Concomitant]
     Active Substance: DEXAMETHASONE\NEOMYCIN SULFATE\POLYMYXIN B SULFATE
  14. LOSARTAN. [Concomitant]
     Active Substance: LOSARTAN
  15. XANAX [Concomitant]
     Active Substance: ALPRAZOLAM
  16. ADVIL [Concomitant]
     Active Substance: IBUPROFEN
  17. MAGNESIUM OXIDE. [Concomitant]
     Active Substance: MAGNESIUM OXIDE
  18. PRED FORTE [Concomitant]
     Active Substance: PREDNISOLONE ACETATE
  19. BAYER LOW DOSE [Suspect]
     Active Substance: ASPIRIN
     Indication: ISCHAEMIC HEART DISEASE PROPHYLAXIS
  20. CALCIUM +VIT D [Concomitant]
     Active Substance: CALCIUM\VITAMIN D

REACTIONS (2)
  - Dizziness [None]
  - Drug ineffective [None]

NARRATIVE: CASE EVENT DATE: 20151015
